FAERS Safety Report 20510737 (Version 1)
Quarter: 2022Q1

REPORT INFORMATION
  Report Type: Spontaneous
  Country: DE (occurrence: DE)
  Receive Date: 20220224
  Receipt Date: 20220224
  Transmission Date: 20220423
  Serious: Yes (Death)
  Sender: FDA-Public Use
  Company Number: DE-GILEAD-2022-0570403

PATIENT
  Age: 66 Year
  Sex: Male

DRUGS (1)
  1. AMPHOTERICIN B [Suspect]
     Active Substance: AMPHOTERICIN B
     Indication: Product used for unknown indication
     Route: 065

REACTIONS (2)
  - Infection [Fatal]
  - Off label use [Unknown]

NARRATIVE: CASE EVENT DATE: 20220217
